FAERS Safety Report 7066496-4 (Version None)
Quarter: 2010Q4

REPORT INFORMATION
  Report Type: 
  Country: None (occurrence: None)
  Receive Date: 20101027
  Receipt Date: 20100125
  Transmission Date: 20110411
  Serious: No
  Sender: FDA-Public Use
  Company Number: US-WYE-H13142610

PATIENT
  Sex: Female

DRUGS (2)
  1. PREMPRO [Suspect]
     Indication: HOT FLUSH
     Dosage: 0.625MG/2.5MG
     Route: 048
  2. CALCITONIN [Suspect]
     Indication: OSTEOPOROSIS
     Dosage: NASAL SPRAY USED DAILY, DOSE NOT PROVIDED
     Route: 045

REACTIONS (3)
  - ERYTHEMA [None]
  - FEELING HOT [None]
  - METRORRHAGIA [None]
